FAERS Safety Report 17894247 (Version 4)
Quarter: 2020Q4

REPORT INFORMATION
  Report Type: Spontaneous
  Country: US (occurrence: US)
  Receive Date: 20200615
  Receipt Date: 20201012
  Transmission Date: 20210113
  Serious: Yes (Other)
  Sender: FDA-Public Use
  Company Number: US-LUPIN PHARMACEUTICALS INC.-2020-02729

PATIENT
  Age: 86 Year
  Sex: Female
  Weight: 85.71 kg

DRUGS (2)
  1. METOPROLOL ACTAVIS [METOPROLOL SUCCINATE] [Concomitant]
     Indication: HYPERTENSION
     Dosage: 50 MILLIGRAM, QD (AT NIGHT)
     Route: 065
     Dates: start: 20200521, end: 20200523
  2. LISINOPRIL TABLETS USP, 10MG [Suspect]
     Active Substance: LISINOPRIL
     Indication: HYPERTENSION
     Dosage: 1 DOSAGE FORM, QD (IN MORNING)
     Route: 048
     Dates: start: 20200521, end: 20200523

REACTIONS (7)
  - Illness [Unknown]
  - Hypertension [Unknown]
  - Feeling abnormal [Unknown]
  - Nausea [Recovered/Resolved]
  - Product shape issue [Unknown]
  - Chest pain [Recovered/Resolved]
  - Dizziness [Recovered/Resolved]

NARRATIVE: CASE EVENT DATE: 20200521
